FAERS Safety Report 24682851 (Version 1)
Quarter: 2024Q4

REPORT INFORMATION
  Report Type: Spontaneous
  Country: FR (occurrence: FR)
  Receive Date: 20241201
  Receipt Date: 20241201
  Transmission Date: 20250115
  Serious: Yes (Other)
  Sender: SANOFI AVENTIS
  Company Number: FR-BIOVITRUM-2024-FR-015147

PATIENT
  Age: 29 Year
  Sex: Male
  Weight: 93 kg

DRUGS (2)
  1. ELOCTATE [Suspect]
     Active Substance: EFMOROCTOCOG ALFA
     Indication: Factor VIII deficiency
     Dosage: 5000 IU
     Route: 065
  2. ELOCTATE [Suspect]
     Active Substance: EFMOROCTOCOG ALFA
     Indication: Factor VIII deficiency
     Dosage: 5000 IU
     Route: 065

REACTIONS (3)
  - Haemophilic arthropathy [Unknown]
  - Haemarthrosis [Unknown]
  - Poor venous access [Unknown]
